FAERS Safety Report 7067923-9 (Version None)
Quarter: 2010Q4

REPORT INFORMATION
  Report Type: 
  Country: None (occurrence: None)
  Receive Date: 20101028
  Receipt Date: 20101019
  Transmission Date: 20110411
  Serious: Yes (Hospitalization)
  Sender: FDA-Public Use
  Company Number: US-ASTRAZENECA-2010SE49381

PATIENT
  Age: 63 Year
  Sex: Female
  Weight: 102.5 kg

DRUGS (8)
  1. ARIMIDEX [Suspect]
     Indication: BREAST CANCER
     Route: 048
     Dates: start: 20060101, end: 20100901
  2. WELLBUTRIN [Concomitant]
  3. ZOLOFT [Concomitant]
  4. VALIUM [Concomitant]
     Indication: SLEEP DISORDER
  5. SINGULAIR [Concomitant]
  6. CALCIUM [Concomitant]
  7. ASCORBIC ACID [Concomitant]
  8. BIOTIN [Concomitant]

REACTIONS (9)
  - ALOPECIA [None]
  - BLOOD CHOLESTEROL INCREASED [None]
  - BLOOD PRESSURE INCREASED [None]
  - CARPAL TUNNEL SYNDROME [None]
  - DYSPNOEA [None]
  - OEDEMA PERIPHERAL [None]
  - THYROID NEOPLASM [None]
  - VULVOVAGINAL DRYNESS [None]
  - WEIGHT DECREASED [None]
